FAERS Safety Report 9331753 (Version 3)
Quarter: 2013Q3

REPORT INFORMATION
  Report Type: Spontaneous
  Country: US (occurrence: US)
  Receive Date: 20130605
  Receipt Date: 20130913
  Transmission Date: 20140515
  Serious: No
  Sender: FDA-Public Use
  Company Number: US-ASTRAZENECA-2013SE36219

PATIENT
  Age: 66 Year
  Sex: Female
  Weight: 81.6 kg

DRUGS (6)
  1. PULMICORT FLEXHALER [Suspect]
     Indication: ASTHMA
     Dosage: 180 MICROGRAMS, 1 PUFF TWICE DAILY
     Route: 055
  2. LISINOPRIL [Suspect]
     Route: 048
  3. METHYL PREDNISOLONE [Suspect]
     Route: 065
  4. PROZAC [Concomitant]
  5. XANAX [Concomitant]
  6. COMBIVENT [Concomitant]

REACTIONS (3)
  - Asthma [Unknown]
  - Cough [Unknown]
  - Off label use [Unknown]
